FAERS Safety Report 14481034 (Version 5)
Quarter: 2018Q3

REPORT INFORMATION
  Report Type: Spontaneous
  Country: JP (occurrence: JP)
  Receive Date: 20180202
  Receipt Date: 20180806
  Transmission Date: 20181010
  Serious: Yes (Hospitalization, Other)
  Sender: FDA-Public Use
  Company Number: JP-GLAXOSMITHKLINE-JP2018JPN014873

PATIENT
  Age: 54 Year
  Sex: Male
  Weight: 58 kg

DRUGS (5)
  1. LAMICTAL [Suspect]
     Active Substance: LAMOTRIGINE
     Dosage: 75 MG, 1D
     Route: 048
     Dates: start: 20171117, end: 20171212
  2. DOGMATYL [Suspect]
     Active Substance: SULPIRIDE
     Indication: BIPOLAR DISORDER
     Dosage: 0.08 G, QD
     Route: 048
     Dates: start: 20171113, end: 20171212
  3. LAMICTAL [Suspect]
     Active Substance: LAMOTRIGINE
     Dosage: 50 MG, 1D
     Route: 048
  4. SENIRAN [Suspect]
     Active Substance: BROMAZEPAM
     Indication: BIPOLAR DISORDER
     Dosage: 0.2 G, QD
     Route: 048
     Dates: start: 20171113, end: 20171212
  5. LAMICTAL [Suspect]
     Active Substance: LAMOTRIGINE
     Indication: BIPOLAR DISORDER
     Dosage: UNK UNK, 1D
     Route: 048

REACTIONS (11)
  - Lymphadenopathy [Unknown]
  - Toxic epidermal necrolysis [Recovered/Resolved]
  - Drug eruption [Recovered/Resolved]
  - Conjunctivitis [Recovering/Resolving]
  - Erythema [Recovering/Resolving]
  - Oral mucosa erosion [Unknown]
  - Eye discharge [Unknown]
  - Conjunctival hyperaemia [Recovering/Resolving]
  - Lip erosion [Unknown]
  - Pyrexia [Unknown]
  - Scab [Unknown]

NARRATIVE: CASE EVENT DATE: 201712
